FAERS Safety Report 22398733 (Version 1)
Quarter: 2023Q2

REPORT INFORMATION
  Report Type: Spontaneous
  Country: BR (occurrence: BR)
  Receive Date: 20230602
  Receipt Date: 20230602
  Transmission Date: 20230721
  Serious: Yes (Other)
  Sender: FDA-Public Use
  Company Number: BR-BAXTER-2023BAX020950

PATIENT
  Age: 51 Year
  Sex: Female

DRUGS (2)
  1. IRON [Suspect]
     Active Substance: IRON
     Indication: Serum ferritin decreased
     Dosage: 10 ML DILUTED IN 250 ML OF SALINE SOLUTION, UNSPECIFIED FREQUENCY
     Route: 042
  2. SODIUM CHLORIDE [Suspect]
     Active Substance: SODIUM CHLORIDE
     Indication: Medication dilution
     Dosage: 250 ML, UNSPECIFIED FREQUENCY
     Route: 042

REACTIONS (4)
  - Symptom recurrence [Recovered/Resolved]
  - Hyperaemia [Recovered/Resolved]
  - Pruritus [Recovered/Resolved]
  - Off label use [Unknown]

NARRATIVE: CASE EVENT DATE: 20230419
